FAERS Safety Report 5017590-0 (Version None)
Quarter: 2006Q2

REPORT INFORMATION
  Report Type: 
  Country: None (occurrence: None)
  Receive Date: 20060601
  Receipt Date: 20060601
  Transmission Date: 20061013
  Serious: Yes (Life-Threatening, Hospitalization, Disabling)
  Sender: FDA-Public Use
  Company Number: None

PATIENT
  Age: 76 Year
  Sex: Female
  Weight: 58.9676 kg

DRUGS (1)
  1. FLEET [Suspect]
     Indication: COLONOSCOPY
     Dosage: AS DIRECTED
     Dates: start: 20050505, end: 20050506

REACTIONS (1)
  - RENAL FAILURE [None]
